FAERS Safety Report 11116062 (Version 1)
Quarter: 2015Q2

REPORT INFORMATION
  Report Type: Spontaneous
  Country: US (occurrence: None)
  Receive Date: 20150514
  Receipt Date: 20150514
  Transmission Date: 20150821
  Serious: Yes (Other)
  Sender: FDA-Public Use
  Company Number: None

PATIENT
  Age: 61 Year
  Sex: Female
  Weight: 61.24 kg

DRUGS (13)
  1. ESCITALOPRAM [Suspect]
     Active Substance: ESCITALOPRAM OXALATE
     Indication: MAJOR DEPRESSION
     Dosage: 1 20 MG AND 10 MG
  2. PROBIOTICS [Concomitant]
     Active Substance: PROBIOTICS NOS
  3. ESCITALOPRAM [Suspect]
     Active Substance: ESCITALOPRAM OXALATE
     Indication: ANXIETY
     Dosage: 1 20 MG AND 10 MG
  4. OMEGAS [Concomitant]
  5. MAGNESIUM [Concomitant]
     Active Substance: MAGNESIUM
  6. VITAMIN D3 [Concomitant]
     Active Substance: CHOLECALCIFEROL
  7. KLONOPIN [Concomitant]
     Active Substance: CLONAZEPAM
  8. B COMPLETE [Concomitant]
  9. VITAMIN C [Concomitant]
     Active Substance: ASCORBIC ACID
  10. ZINC [Concomitant]
     Active Substance: ZINC\ZINC CHLORIDE
  11. ESCITALOPRAM [Concomitant]
     Active Substance: ESCITALOPRAM OXALATE
  12. SYNTHROID [Concomitant]
     Active Substance: LEVOTHYROXINE SODIUM
  13. TURMERIC [Concomitant]
     Active Substance: TURMERIC

REACTIONS (5)
  - Sleep disorder [None]
  - Product substitution issue [None]
  - Gastrointestinal disorder [None]
  - Disease recurrence [None]
  - Depression [None]
